FAERS Safety Report 6525201-8 (Version None)
Quarter: 2009Q4

REPORT INFORMATION
  Report Type: 
  Country: None (occurrence: None)
  Receive Date: 20091222
  Receipt Date: 20091210
  Transmission Date: 20100525
  Serious: Yes (Hospitalization)
  Sender: FDA-Public Use
  Company Number: 002818

PATIENT

DRUGS (4)
  1. NEUPRO [Suspect]
     Indication: PARKINSON'S DISEASE
     Dosage: 2 MG QD TRANSDERMAL, 4 MG QD TRANSDERMAL, 6 MG QD TRANSDERMAL, 8MG QD TRANSDERMAL
     Route: 062
     Dates: start: 20080717, end: 20080725
  2. NEUPRO [Suspect]
     Indication: PARKINSON'S DISEASE
     Dosage: 2 MG QD TRANSDERMAL, 4 MG QD TRANSDERMAL, 6 MG QD TRANSDERMAL, 8MG QD TRANSDERMAL
     Route: 062
     Dates: start: 20080726, end: 20080802
  3. NEUPRO [Suspect]
     Indication: PARKINSON'S DISEASE
     Dosage: 2 MG QD TRANSDERMAL, 4 MG QD TRANSDERMAL, 6 MG QD TRANSDERMAL, 8MG QD TRANSDERMAL
     Route: 062
     Dates: start: 20080803, end: 20080803
  4. NEUPRO [Suspect]
     Indication: PARKINSON'S DISEASE
     Dosage: 2 MG QD TRANSDERMAL, 4 MG QD TRANSDERMAL, 6 MG QD TRANSDERMAL, 8MG QD TRANSDERMAL
     Route: 062
     Dates: start: 20080816

REACTIONS (1)
  - PARKINSON'S DISEASE [None]
